FAERS Safety Report 9178029 (Version 3)
Quarter: 2015Q3

REPORT INFORMATION
  Report Type: Spontaneous
  Country: US (occurrence: US)
  Receive Date: 20130321
  Receipt Date: 20150918
  Transmission Date: 20151125
  Serious: Yes (Hospitalization, Disabling, Other)
  Sender: FDA-Public Use
  Company Number: US-009507513-1303USA010348

PATIENT
  Sex: Male
  Weight: 149.66 kg

DRUGS (2)
  1. JANUVIA [Suspect]
     Active Substance: SITAGLIPTIN PHOSPHATE
     Indication: TYPE 2 DIABETES MELLITUS
     Dosage: 100 MG, UNK
     Route: 048
  2. BYETTA [Suspect]
     Active Substance: EXENATIDE
     Indication: TYPE 2 DIABETES MELLITUS
     Dosage: 10 MICROGRAM, BID
     Route: 048
     Dates: start: 200908, end: 200911

REACTIONS (43)
  - Pancreaticoduodenectomy [Unknown]
  - Incisional hernia repair [Unknown]
  - Biliary dyskinesia [Not Recovered/Not Resolved]
  - Jejunal ulcer [Unknown]
  - Hepatic lesion [Unknown]
  - Tachycardia [Recovered/Resolved]
  - Pneumoperitoneum [Unknown]
  - Sepsis [Unknown]
  - Psoriasis [Unknown]
  - Metastases to liver [Unknown]
  - Abscess drainage [Unknown]
  - Varicose vein operation [Unknown]
  - Snoring [Unknown]
  - Joint swelling [Unknown]
  - Pancreatic leak [Unknown]
  - Pancreatic insufficiency [Unknown]
  - Joint injury [Unknown]
  - Pancreaticojejunostomy [Unknown]
  - Pancreatic duct stenosis [Unknown]
  - Abdominal abscess [Unknown]
  - Pancreatic duct dilatation [Unknown]
  - Divorced [Unknown]
  - Varicose vein [Unknown]
  - Wound infection [Unknown]
  - Pyrexia [Unknown]
  - Pancreatitis [Unknown]
  - Pancreatic fistula [Unknown]
  - Inguinal hernia [Unknown]
  - Hydrocele [Unknown]
  - Lethargy [Unknown]
  - Cholecystectomy [Not Recovered/Not Resolved]
  - Seroma [Unknown]
  - Gastrinoma [Unknown]
  - Job dissatisfaction [Unknown]
  - Hyperlipidaemia [Unknown]
  - Rash [Unknown]
  - Neuroendocrine carcinoma metastatic [Unknown]
  - Metastases to lymph nodes [Unknown]
  - Dehydration [Unknown]
  - Duodenal ulcer [Unknown]
  - Mass [Unknown]
  - Chest pain [Recovered/Resolved]
  - Hepatic steatosis [Unknown]

NARRATIVE: CASE EVENT DATE: 2010
